FAERS Safety Report 5076379-7 (Version None)
Quarter: 2006Q3

REPORT INFORMATION
  Report Type: 
  Country: None (occurrence: None)
  Receive Date: 20060807
  Receipt Date: 20060726
  Transmission Date: 20061208
  Serious: Yes (Other)
  Sender: FDA-Public Use
  Company Number: HQWYE394126JUL06

PATIENT
  Age: 82 Year
  Sex: Female

DRUGS (5)
  1. EUPANTOL                        (PANTOPRAZOLE DELAYED RELEASE) [Suspect]
     Indication: ABDOMINAL PAIN
     Dosage: 40 MG 1X PER 1 DAY ORAL
     Route: 048
     Dates: start: 20060713, end: 20060717
  2. EUPANTOL                        (PANTOPRAZOLE DELAYED RELEASE) [Suspect]
     Indication: DYSPEPSIA
     Dosage: 40 MG 1X PER 1 DAY ORAL
     Route: 048
     Dates: start: 20060713, end: 20060717
  3. EUPANTOL                        (PANTOPRAZOLE DELAYED RELEASE) [Suspect]
     Indication: ABDOMINAL PAIN
     Dosage: 40 MG 1X PER 1 DAY ORAL
     Route: 048
     Dates: start: 20060719
  4. EUPANTOL                        (PANTOPRAZOLE DELAYED RELEASE) [Suspect]
     Indication: DYSPEPSIA
     Dosage: 40 MG 1X PER 1 DAY ORAL
     Route: 048
     Dates: start: 20060719
  5. ROCGEL (ALUMINIUM OXIDE) [Concomitant]

REACTIONS (2)
  - DRUG DOSE OMISSION [None]
  - FAECES DISCOLOURED [None]
